FAERS Safety Report 9702711 (Version 1)
Quarter: 2013Q4

REPORT INFORMATION
  Report Type: Spontaneous
  Country: CA (occurrence: None)
  Receive Date: 20131120
  Receipt Date: 20131120
  Transmission Date: 20140711
  Serious: Yes (Other)
  Sender: FDA-Public Use
  Company Number: COR_00027_2013

PATIENT
  Age: 54 Year
  Sex: Female

DRUGS (12)
  1. CCNU [Suspect]
     Indication: PRODUCT USED FOR UNKNOWN INDICATION
     Dosage: (DF)
  2. DECADRON [Suspect]
     Indication: PRODUCT USED FOR UNKNOWN INDICATION
     Dosage: (DF)
     Dates: end: 20131025
  3. AVASTIN [Suspect]
     Indication: GLIOBLASTOMA
     Dosage: (FREQUENCY NOT SPECIFIED)
     Route: 042
     Dates: start: 20130808
  4. FLU SHOT [Suspect]
     Indication: PRODUCT USED FOR UNKNOWN INDICATION
     Dosage: (DF)
     Dates: start: 20131025
  5. KEPPRA [Concomitant]
  6. LACOSAMIDE [Concomitant]
  7. LASIX /00032601/ [Concomitant]
  8. VITAMIN B [Concomitant]
  9. VITAMIN D /00107901/ [Concomitant]
  10. STEMETIL /00013301/ [Concomitant]
  11. PANTOPRAZOLE [Concomitant]
  12. ATIVAN [Concomitant]

REACTIONS (1)
  - Convulsion [None]
